FAERS Safety Report 16870020 (Version 1)
Quarter: 2019Q3

REPORT INFORMATION
  Report Type: Spontaneous
  Country: US (occurrence: US)
  Receive Date: 20190930
  Receipt Date: 20190930
  Transmission Date: 20191005
  Serious: Yes (Other)
  Sender: FDA-Public Use
  Company Number: US-BAYER-2019-173259

PATIENT
  Age: 63 Year

DRUGS (2)
  1. XALKORI [Concomitant]
     Active Substance: CRIZOTINIB
     Dosage: C18.7 / 20 MG
  2. STIVARGA [Suspect]
     Active Substance: REGORAFENIB
     Indication: COLON CANCER METASTATIC

REACTIONS (1)
  - Colon cancer metastatic [None]
